FAERS Safety Report 4374343-4 (Version None)
Quarter: 2004Q2

REPORT INFORMATION
  Report Type: 
  Country: None (occurrence: None)
  Receive Date: 20040608
  Receipt Date: 20040608
  Transmission Date: 20050107
  Serious: Yes (Other)
  Sender: FDA-Public Use
  Company Number: None

PATIENT
  Sex: Female
  Weight: 53.0709 kg

DRUGS (2)
  1. MINOCYCLINE HCL [Suspect]
     Indication: ACNE
     Dosage: 1 DAILY ORAL
     Route: 048
     Dates: start: 20040224, end: 20040303
  2. TETRACYCLINE [Suspect]
     Indication: ACNE
     Dosage: 1 DAILY ORAL
     Route: 048
     Dates: start: 20040322, end: 20040328

REACTIONS (5)
  - CRYING [None]
  - DRUG HYPERSENSITIVITY [None]
  - DRUG INEFFECTIVE [None]
  - EMOTIONAL DISORDER [None]
  - SUICIDAL IDEATION [None]
